FAERS Safety Report 6132271-8 (Version None)
Quarter: 2009Q1

REPORT INFORMATION
  Report Type: 
  Country: None (occurrence: None)
  Receive Date: 20090325
  Receipt Date: 20090310
  Transmission Date: 20090719
  Serious: Yes (Death)
  Sender: FDA-Public Use
  Company Number: BR-ROCHE-620922

PATIENT
  Age: 45 Year
  Sex: Female

DRUGS (3)
  1. FUZEON [Suspect]
     Indication: ANTIRETROVIRAL THERAPY
     Route: 042
  2. DARUNAVIR [Concomitant]
     Indication: ANTIRETROVIRAL THERAPY
  3. RALTEGRAVIR [Concomitant]
     Indication: ANTIRETROVIRAL THERAPY
     Dosage: DRUG NAME REPORTED AS RATELGRAVIR

REACTIONS (2)
  - CD4 LYMPHOCYTES DECREASED [None]
  - PNEUMOCYSTIS JIROVECI PNEUMONIA [None]
